FAERS Safety Report 4711340-0 (Version None)
Quarter: 2005Q3

REPORT INFORMATION
  Report Type: 
  Country: None (occurrence: None)
  Receive Date: 20050708
  Receipt Date: 20050627
  Transmission Date: 20060218
  Serious: Yes (Hospitalization, Other)
  Sender: FDA-Public Use
  Company Number: 2005083699

PATIENT
  Age: 3 Year
  Sex: Female
  Weight: 14.5151 kg

DRUGS (2)
  1. GENOTROPIN [Suspect]
     Indication: PRADER-WILLI SYNDROME
     Dosage: 0.2 MG (0.2 MG), SUBCUTANEOUS
     Route: 058
     Dates: start: 20040318, end: 20050523
  2. CLARITIN [Concomitant]

REACTIONS (6)
  - FEBRILE CONVULSION [None]
  - HEADACHE [None]
  - HYDROCEPHALUS [None]
  - PHARMACEUTICAL PRODUCT COMPLAINT [None]
  - PHARYNGITIS [None]
  - VOMITING [None]
